FAERS Safety Report 11523805 (Version 2)
Quarter: 2015Q3

REPORT INFORMATION
  Report Type: Spontaneous
  Country: BR (occurrence: BR)
  Receive Date: 20150918
  Receipt Date: 20150922
  Transmission Date: 20151125
  Serious: Yes (Hospitalization, Disabling)
  Sender: FDA-Public Use
  Company Number: BR-ABBVIE-15P-020-1420887-00

PATIENT
  Age: 91 Year
  Sex: Female
  Weight: 50 kg

DRUGS (7)
  1. DEPAKOTE ER [Suspect]
     Active Substance: DIVALPROEX SODIUM
     Indication: EPILEPSY
     Dosage: AT NIGHT, 07:00PM: 1 TABLET (500 MG) DAILY
     Route: 048
     Dates: start: 2011
  2. ISORDIL [Concomitant]
     Active Substance: ISOSORBIDE DINITRATE
     Indication: CARDIAC DISORDER
  3. ATENOLOL. [Concomitant]
     Active Substance: ATENOLOL
     Indication: PRODUCT USED FOR UNKNOWN INDICATION
     Dosage: 50 MG IN MORNING AND NIGHT; DAILY DOSE: 100 MG
     Route: 048
     Dates: start: 201506
  4. ISORDIL [Concomitant]
     Active Substance: ISOSORBIDE DINITRATE
     Indication: PRODUCT USED FOR UNKNOWN INDICATION
     Dosage: 10 MG IN MORNING AND NIGHT; DAILY DOSE: 20 MG
     Route: 048
     Dates: start: 201506
  5. AAS [Concomitant]
     Active Substance: ASPIRIN
     Indication: CEREBROVASCULAR ACCIDENT PROPHYLAXIS
  6. AAS [Concomitant]
     Active Substance: ASPIRIN
     Indication: ANTICOAGULANT THERAPY
     Dosage: 1 TABLET AFTER LUNCH
     Route: 048
     Dates: start: 201506
  7. VITAMINS NOS [Concomitant]
     Active Substance: VITAMINS
     Indication: APPETITE DISORDER
     Route: 048
     Dates: start: 201506

REACTIONS (10)
  - Pneumonia [Recovered/Resolved]
  - Dysphagia [Not Recovered/Not Resolved]
  - Wrist fracture [Recovering/Resolving]
  - Fall [Unknown]
  - Drug dose omission [Not Recovered/Not Resolved]
  - Lung infection [Recovered/Resolved]
  - Product difficult to swallow [Not Recovered/Not Resolved]
  - Lung infection [Recovered/Resolved]
  - Wrong technique in product usage process [Unknown]
  - Nervousness [Unknown]

NARRATIVE: CASE EVENT DATE: 201502
